FAERS Safety Report 20155054 (Version 2)
Quarter: 2021Q4

REPORT INFORMATION
  Report Type: Other
  Country: US (occurrence: None)
  Receive Date: 20211207
  Receipt Date: 20211209
  Transmission Date: 20220303
  Serious: Yes (Hospitalization)
  Sender: FDA-Public Use
  Company Number: US-ROCHE-2964925

PATIENT
  Age: 33 Year
  Sex: Female

DRUGS (10)
  1. OCRELIZUMAB [Suspect]
     Active Substance: OCRELIZUMAB
     Indication: Multiple sclerosis
     Dosage: SUBSEQUENT DOSE ON 19/APR/2021
     Route: 042
     Dates: start: 20210405
  2. OCRELIZUMAB [Suspect]
     Active Substance: OCRELIZUMAB
     Route: 042
     Dates: start: 20211123
  3. AMITRIPTYLINE [Concomitant]
     Active Substance: AMITRIPTYLINE
     Indication: Headache
     Dates: start: 20210617
  4. AMITRIPTYLINE [Concomitant]
     Active Substance: AMITRIPTYLINE
     Indication: Insomnia
  5. BACLOFEN [Concomitant]
     Active Substance: BACLOFEN
     Dates: start: 20210216
  6. VITAMIN D3 [Concomitant]
     Active Substance: CHOLECALCIFEROL
     Indication: Vitamin D deficiency
     Dates: start: 2021
  7. FERROUS SULFATE [Concomitant]
     Active Substance: FERROUS SULFATE
     Indication: Iron deficiency
     Dates: start: 20210415
  8. GABAPENTIN [Concomitant]
     Active Substance: GABAPENTIN
     Dates: start: 20210301
  9. TIZANIDINE [Concomitant]
     Active Substance: TIZANIDINE
     Dates: start: 20210414
  10. DICLOFENAC [Concomitant]
     Active Substance: DICLOFENAC
     Indication: Headache
     Dates: start: 20211120

REACTIONS (1)
  - Cholecystitis [Recovered/Resolved]

NARRATIVE: CASE EVENT DATE: 20211025
